FAERS Safety Report 8230447-7 (Version None)
Quarter: 2012Q1

REPORT INFORMATION
  Report Type: 
  Country: None (occurrence: None)
  Receive Date: 20120323
  Receipt Date: 20120315
  Transmission Date: 20120608
  Serious: Yes (Hospitalization)
  Sender: FDA-Public Use
  Company Number: US-BAYER-201041994NA

PATIENT
  Age: 21 Year
  Sex: Female
  Weight: 119.7 kg

DRUGS (9)
  1. TULENOL [Concomitant]
     Indication: TOOTHACHE
  2. MOTRIN [Concomitant]
     Indication: TOOTHACHE
  3. CLINDAMYCIN [Concomitant]
     Dosage: 150 MG, UNK
     Route: 048
     Dates: start: 20100623
  4. YAZ [Suspect]
     Indication: CONTRACEPTION
     Dosage: UNK
     Dates: start: 20080101
  5. YAZ [Suspect]
     Dosage: UNK
     Dates: start: 20100501, end: 20100721
  6. YASMIN [Suspect]
     Dosage: UNK
     Dates: start: 20100501, end: 20100721
  7. TULENOL [Concomitant]
     Indication: HEADACHE
  8. MOTRIN [Concomitant]
     Indication: HEADACHE
  9. YASMIN [Suspect]
     Indication: CONTRACEPTION
     Dosage: UNK
     Dates: start: 20080101

REACTIONS (2)
  - MOBILITY DECREASED [None]
  - CEREBROVASCULAR ACCIDENT [None]
